FAERS Safety Report 7458167-7 (Version None)
Quarter: 2011Q2

REPORT INFORMATION
  Report Type: 
  Country: None (occurrence: None)
  Receive Date: 20110504
  Receipt Date: 20110502
  Transmission Date: 20111010
  Serious: Yes (Death)
  Sender: FDA-Public Use
  Company Number: PHHY2011NZ15667

PATIENT
  Sex: Female

DRUGS (7)
  1. CLOZARIL [Suspect]
     Indication: SCHIZOPHRENIA
     Dosage: UNK
     Dates: start: 20090107
  2. FLUDROCORTISONE [Concomitant]
  3. SINEMET [Concomitant]
  4. CLOZARIL [Suspect]
     Indication: PSYCHOTIC DISORDER
     Dosage: 12.5MG MANE AND 50MG NOCTE, 62.5MG DAILY
  5. PAROXETINE HCL [Concomitant]
  6. LORAZEPAM [Concomitant]
  7. SIMVASTATIN [Concomitant]

REACTIONS (2)
  - OVERDOSE [None]
  - COMPLETED SUICIDE [None]
